FAERS Safety Report 11092911 (Version 1)
Quarter: 2015Q2

REPORT INFORMATION
  Report Type: Spontaneous
  Country: US (occurrence: None)
  Receive Date: 20150504
  Receipt Date: 20150504
  Transmission Date: 20150821
  Serious: Yes (Hospitalization)
  Sender: FDA-Public Use
  Company Number: 2015TASUS000750

PATIENT
  Age: 68 Year
  Sex: Male

DRUGS (21)
  1. CARISOPRODOL. [Concomitant]
     Active Substance: CARISOPRODOL
  2. FOLIC ACID. [Concomitant]
     Active Substance: FOLIC ACID
  3. TEMAZEPAM. [Concomitant]
     Active Substance: TEMAZEPAM
  4. DOCUSATE SODIUM. [Concomitant]
     Active Substance: DOCUSATE SODIUM
  5. LEVOTHYROXINE SODIUM. [Concomitant]
     Active Substance: LEVOTHYROXINE SODIUM
  6. VITAMIN D3 [Concomitant]
     Active Substance: CHOLECALCIFEROL
  7. ASPIRIN (ACETYLSALICYLIC ACID) [Concomitant]
     Active Substance: ASPIRIN
  8. CALCIUM CARBONATE. [Concomitant]
     Active Substance: CALCIUM CARBONATE
  9. LORATADINE. [Concomitant]
     Active Substance: LORATADINE
  10. METOPROLOL TARTRATE. [Concomitant]
     Active Substance: METOPROLOL TARTRATE
  11. OMPERAZOLE [Concomitant]
     Active Substance: OMEPRAZOLE
  12. PROLIA [Concomitant]
     Active Substance: DENOSUMAB
  13. ASCORBIC ACID. [Concomitant]
     Active Substance: ASCORBIC ACID
  14. TAMSULOSIN HCL (TAMSULOSIN HYDROCHLORIDE) [Concomitant]
  15. LOVASTATIN. [Concomitant]
     Active Substance: LOVASTATIN
  16. GABAPENTIN. [Concomitant]
     Active Substance: GABAPENTIN
  17. MELATONIN [Concomitant]
     Active Substance: MELATONIN
  18. VITAMIN B12 [Concomitant]
     Active Substance: CYANOCOBALAMIN
  19. HETLIOZ [Suspect]
     Active Substance: TASIMELTEON
     Indication: CIRCADIAN RHYTHM SLEEP DISORDER
     Route: 048
     Dates: start: 20150331, end: 201504
  20. NIFEDICAL (NIFEDIPINE) [Concomitant]
  21. POLYETHYLENE GLYCOL 3350 (MACROGOL 3350) [Concomitant]

REACTIONS (2)
  - Gastric disorder [None]
  - Drug dose omission [None]

NARRATIVE: CASE EVENT DATE: 20150405
